FAERS Safety Report 9792081 (Version 1)
Quarter: 2013Q4

REPORT INFORMATION
  Report Type: Spontaneous
  Country: US (occurrence: None)
  Receive Date: 20131230
  Receipt Date: 20131230
  Transmission Date: 20140711
  Serious: Yes (Other)
  Sender: FDA-Public Use
  Company Number: 2013HINOTH0331

PATIENT
  Age: 30 Year
  Sex: Female

DRUGS (2)
  1. NEVIRAPINE (NEVIRAPINE) [Suspect]
     Indication: ANTIVIRAL TREATMENT
     Route: 048
  2. TRUVADA (TENOFOVIR DISPROXIL FUMARATE + EMTRICITABINE) [Concomitant]

REACTIONS (1)
  - Intracardiac mass [None]
